FAERS Safety Report 4616528-5 (Version None)
Quarter: 2005Q1

REPORT INFORMATION
  Report Type: 
  Country: None (occurrence: None)
  Receive Date: 20050318
  Receipt Date: 20050302
  Transmission Date: 20050727
  Serious: Yes (Death)
  Sender: FDA-Public Use
  Company Number: L04-USA-07403-66

PATIENT
  Age: 25 Year
  Sex: Female

DRUGS (7)
  1. DILTIAZEM [Suspect]
  2. ESCITALOPRAM OXALATE [Suspect]
  3. LORAZEPAM [Suspect]
  4. BENZTROPINE MESYLATE [Suspect]
  5. ZIPRASIDONE [Concomitant]
  6. FEXOFENADINE HCL [Concomitant]
  7. OXCARBAZEPINE [Concomitant]

REACTIONS (18)
  - ATRIAL FIBRILLATION [None]
  - BLOOD PH DECREASED [None]
  - CARDIAC ARREST [None]
  - COMA [None]
  - COMPLETED SUICIDE [None]
  - ELECTROCARDIOGRAM QRS COMPLEX PROLONGED [None]
  - ELECTROCARDIOGRAM QT CORRECTED INTERVAL PROLONGED [None]
  - HAEMODIALYSIS [None]
  - HYPOTENSION [None]
  - HYPOXIA [None]
  - MULTIPLE DRUG OVERDOSE [None]
  - NODAL RHYTHM [None]
  - PCO2 DECREASED [None]
  - PNEUMONIA ASPIRATION [None]
  - PO2 DECREASED [None]
  - RENAL FAILURE [None]
  - SUPRAVENTRICULAR TACHYCARDIA [None]
  - THERAPY NON-RESPONDER [None]
